FAERS Safety Report 14950104 (Version 1)
Quarter: 2018Q2

REPORT INFORMATION
  Report Type: Spontaneous
  Country: US (occurrence: US)
  Receive Date: 20180530
  Receipt Date: 20180530
  Transmission Date: 20180711
  Serious: Yes (Other)
  Sender: FDA-Public Use
  Company Number: US-OCTA-LIT15718US

PATIENT
  Age: 75 Year
  Sex: Female

DRUGS (2)
  1. PYRIDOSTIGMINE [Suspect]
     Active Substance: PYRIDOSTIGMINE
     Indication: MYASTHENIA GRAVIS CRISIS
  2. HUMAN NORMAL IMMUNOGLOBULIN (IV) [Suspect]
     Active Substance: HUMAN IMMUNOGLOBULIN G
     Indication: MYASTHENIA GRAVIS CRISIS
     Route: 042

REACTIONS (5)
  - Transfusion-related circulatory overload [Unknown]
  - Troponin increased [Unknown]
  - Acute respiratory distress syndrome [Unknown]
  - Electrocardiogram ST segment elevation [Unknown]
  - Stress cardiomyopathy [Unknown]
